FAERS Safety Report 13203645 (Version 1)
Quarter: 2017Q1

REPORT INFORMATION
  Report Type: Spontaneous
  Country: US (occurrence: US)
  Receive Date: 20170208
  Receipt Date: 20170208
  Transmission Date: 20170428
  Serious: No
  Sender: FDA-Public Use
  Company Number: US-AMGEN-USASP2016096166

PATIENT
  Age: 48 Year
  Sex: Female

DRUGS (1)
  1. NEULASTA [Suspect]
     Active Substance: PEGFILGRASTIM
     Indication: PRODUCT USED FOR UNKNOWN INDICATION
     Dosage: UNK
     Route: 065

REACTIONS (8)
  - Vomiting [Unknown]
  - Abdominal pain upper [Not Recovered/Not Resolved]
  - Salivary hypersecretion [Unknown]
  - Eructation [Unknown]
  - Pain in extremity [Not Recovered/Not Resolved]
  - Throat irritation [Unknown]
  - Bone pain [Not Recovered/Not Resolved]
  - Gastrooesophageal reflux disease [Not Recovered/Not Resolved]
